FAERS Safety Report 7028080 (Version 5)
Quarter: 2020Q3

REPORT INFORMATION
  Report Type: Report from Study
  Country: SG (occurrence: SG)
  Receive Date: 20090619
  Receipt Date: 20110324
  Transmission Date: 20201104
  Serious: Yes (Hospitalization)
  Sender: FDA-Public Use
  Company Number: SG-JNJFOC-20090602245

PATIENT
  Age: 52 Year
  Sex: Male
  Weight: 75.5 kg

DRUGS (2)
  1. NESIRITIDE [Suspect]
     Active Substance: NESIRITIDE
     Route: 042
  2. NESIRITIDE [Suspect]
     Active Substance: NESIRITIDE
     Indication: CARDIAC FAILURE ACUTE
     Route: 042

REACTIONS (1)
  - Ischaemic stroke [Recovered/Resolved with Sequelae]

NARRATIVE: CASE EVENT DATE: 20090527
